FAERS Safety Report 7285159 (Version 6)
Quarter: 2013Q4

REPORT INFORMATION
  Report Type: Spontaneous
  Country: US (occurrence: US)
  Receive Date: 20100219
  Receipt Date: 20131202
  Transmission Date: 20140711
  Serious: Yes (Hospitalization, Other)
  Sender: FDA-Public Use
  Company Number: US-BAYER-201013985NA

PATIENT
  Age: 38 Year
  Sex: Female
  Weight: 151.93 kg

DRUGS (12)
  1. YASMIN [Suspect]
     Indication: PRODUCT USED FOR UNKNOWN INDICATION
     Dosage: UNK
     Route: 048
     Dates: start: 200404, end: 2010
  2. OCELLA [Suspect]
     Dosage: UNK
     Dates: start: 200404, end: 2010
  3. TOPAMAX [Concomitant]
  4. LORAZEPAM [Concomitant]
  5. LORATADINE [Concomitant]
     Dosage: UNK
     Route: 048
     Dates: start: 20071120
  6. ACIPHEX [Concomitant]
     Dosage: UNK
     Route: 048
     Dates: start: 20071120
  7. TRAMADOL [Concomitant]
     Dosage: 50 MG, UNK
     Route: 048
  8. ZYRTEC [Concomitant]
     Dosage: 10 MG, UNK
     Route: 048
  9. ALBUTEROL [Concomitant]
     Dosage: UNK
     Dates: start: 20071120
  10. IPRATROPIUM [Concomitant]
     Dosage: 0.6 %, UNK
     Dates: start: 20070925
  11. SINGULAIR [Concomitant]
     Dosage: 10 MG, UNK
     Route: 048
     Dates: start: 20070925
  12. AZITHROMYCIN [Concomitant]
     Dosage: 250 MG, UNK
     Route: 048
     Dates: start: 20071003

REACTIONS (5)
  - Cholecystectomy [None]
  - Cholecystitis chronic [None]
  - Injury [None]
  - Anxiety [Not Recovered/Not Resolved]
  - Depression [Not Recovered/Not Resolved]
